FAERS Safety Report 13693450 (Version 1)
Quarter: 2017Q2

REPORT INFORMATION
  Report Type: Spontaneous
  Country: FR (occurrence: FR)
  Receive Date: 20170627
  Receipt Date: 20170627
  Transmission Date: 20170830
  Serious: Yes (Other)
  Sender: FDA-Public Use
  Company Number: FR-JNJFOC-20170623049

PATIENT
  Age: 69 Year
  Sex: Female

DRUGS (2)
  1. XARELTO [Suspect]
     Active Substance: RIVAROXABAN
     Indication: ARRHYTHMIA
     Route: 048
     Dates: start: 201609
  2. XARELTO [Suspect]
     Active Substance: RIVAROXABAN
     Indication: ATRIAL FIBRILLATION
     Route: 048
     Dates: start: 201609

REACTIONS (11)
  - Pruritus [Unknown]
  - Syncope [Recovered/Resolved]
  - Tonsillitis [Unknown]
  - Paralysis [Recovered/Resolved]
  - Pyrexia [Unknown]
  - Aphasia [Recovered/Resolved]
  - Haemorrhage [Unknown]
  - Malaise [Unknown]
  - Dry mouth [Unknown]
  - Mobility decreased [Recovered/Resolved]
  - Gastric ulcer [Recovered/Resolved]

NARRATIVE: CASE EVENT DATE: 20170609
